FAERS Safety Report 10556418 (Version 1)
Quarter: 2014Q4

REPORT INFORMATION
  Report Type: Spontaneous
  Country: SK (occurrence: SK)
  Receive Date: 20141031
  Receipt Date: 20141031
  Transmission Date: 20150529
  Serious: Yes (Life-Threatening, Hospitalization)
  Sender: FDA-Public Use
  Company Number: SK-BRISTOL-MYERS SQUIBB COMPANY-21520531

PATIENT
  Age: 93 Year
  Sex: Female
  Weight: 58 kg

DRUGS (6)
  1. LITALIR [Suspect]
     Active Substance: HYDROXYUREA
     Indication: ESSENTIAL THROMBOCYTHAEMIA
     Route: 048
     Dates: start: 20140815, end: 20140918
  2. OLICARD [Concomitant]
     Indication: MYOCARDIAL ISCHAEMIA
     Dosage: LONGTERM
     Route: 048
  3. MILURIT [Concomitant]
     Active Substance: ALLOPURINOL
     Dosage: LONGTERM
  4. PRENESSA [Concomitant]
     Active Substance: PERINDOPRIL
     Indication: HYPERTENSION
     Dosage: LONGTERM
     Route: 048
  5. CONCOR [Concomitant]
     Active Substance: BISOPROLOL FUMARATE
     Dosage: LONGTERM
  6. ACETYLSALICYLIC ACID [Concomitant]
     Active Substance: ASPIRIN

REACTIONS (7)
  - Melaena [Recovered/Resolved]
  - Thrombocytopenia [Recovered/Resolved]
  - Gastrointestinal haemorrhage [Recovered/Resolved]
  - Anaemia [Recovered/Resolved]
  - Off label use [Unknown]
  - Agranulocytosis [Recovered/Resolved]
  - Pancytopenia [Recovered/Resolved]

NARRATIVE: CASE EVENT DATE: 20140918
